FAERS Safety Report 13445391 (Version 1)
Quarter: 2017Q2

REPORT INFORMATION
  Report Type: Report from Study
  Country: None (occurrence: CA)
  Receive Date: 20170415
  Receipt Date: 20170415
  Transmission Date: 20170830
  Serious: Yes (Hospitalization)
  Sender: FDA-Public Use
  Company Number: CA-ABBVIE-17P-028-1911510-00

PATIENT
  Age: 54 Year
  Sex: Female

DRUGS (1)
  1. HUMIRA [Suspect]
     Active Substance: ADALIMUMAB
     Indication: UVEITIS
     Route: 058
     Dates: start: 20160407, end: 201703

REACTIONS (8)
  - Nasal congestion [Not Recovered/Not Resolved]
  - Diarrhoea [Unknown]
  - Viral infection [Not Recovered/Not Resolved]
  - Viral upper respiratory tract infection [Unknown]
  - Influenza [Unknown]
  - Urinary tract infection [Unknown]
  - Renal disorder [Unknown]
  - Sinusitis [Not Recovered/Not Resolved]

NARRATIVE: CASE EVENT DATE: 201703
